FAERS Safety Report 13764200 (Version 2)
Quarter: 2017Q3

REPORT INFORMATION
  Report Type: Spontaneous
  Country: IT (occurrence: IT)
  Receive Date: 20170718
  Receipt Date: 20170721
  Transmission Date: 20171127
  Serious: Yes (Hospitalization)
  Sender: FDA-Public Use
  Company Number: IT-PFIZER INC-2017308439

PATIENT
  Age: 54 Year
  Sex: Female

DRUGS (3)
  1. EUTIROX [Concomitant]
     Active Substance: LEVOTHYROXINE SODIUM
  2. TAVOR (LORAZEPAM) [Suspect]
     Active Substance: LORAZEPAM
     Indication: ANXIETY
     Dosage: 7.5 MG, TOTAL (3 TABLETS OF TAVOR, 2.5 MG OF STRENGTH)
     Route: 048
     Dates: start: 20170324, end: 20170324
  3. MODALINA [Concomitant]
     Active Substance: TRIFLUOPERAZINE HYDROCHLORIDE

REACTIONS (5)
  - Road traffic accident [Recovered/Resolved]
  - Drug abuse [Recovered/Resolved]
  - Abdominal pain [Recovered/Resolved]
  - Back pain [Recovered/Resolved]
  - Neck pain [Recovered/Resolved]

NARRATIVE: CASE EVENT DATE: 20170324
